FAERS Safety Report 5106603-3 (Version None)
Quarter: 2006Q3

REPORT INFORMATION
  Report Type: 
  Country: None (occurrence: None)
  Receive Date: 20060918
  Receipt Date: 20060808
  Transmission Date: 20061208
  Serious: Yes (Other)
  Sender: FDA-Public Use
  Company Number: US-NOVOPROD-255964

PATIENT
  Age: 37 Year
  Sex: Female
  Weight: 99 kg

DRUGS (6)
  1. INSULIN DETEMIR FLEXPEN [Suspect]
     Indication: INSULIN-REQUIRING TYPE II DIABETES MELLITUS
     Dosage: 30 U, QD
     Route: 058
     Dates: start: 20060421, end: 20060803
  2. INSULIN DETEMIR FLEXPEN [Suspect]
     Dosage: 40 U, QD
     Route: 058
     Dates: start: 20060804
  3. METFORMIN HCL [Concomitant]
     Indication: INSULIN-REQUIRING TYPE II DIABETES MELLITUS
     Dates: start: 19981001
  4. PIOGLITAZONE HCL [Concomitant]
     Indication: INSULIN-REQUIRING TYPE II DIABETES MELLITUS
     Dates: start: 20050201
  5. GLIPIZIDE [Concomitant]
     Indication: INSULIN-REQUIRING TYPE II DIABETES MELLITUS
     Dates: start: 19981001
  6. ATORVASTATIN CALCIUM [Concomitant]
     Indication: BLOOD CHOLESTEROL
     Dates: start: 20020601

REACTIONS (2)
  - ASTHMA [None]
  - GLYCOSYLATED HAEMOGLOBIN INCREASED [None]
